FAERS Safety Report 20601719 (Version 1)
Quarter: 2022Q1

REPORT INFORMATION
  Report Type: Spontaneous
  Country: US (occurrence: US)
  Receive Date: 20220316
  Receipt Date: 20220316
  Transmission Date: 20220423
  Serious: No
  Sender: FDA-Public Use
  Company Number: US-GSKCCFUS-Case-01321671_AE-76905

PATIENT
  Sex: Female

DRUGS (3)
  1. SOTROVIMAB [Suspect]
     Active Substance: SOTROVIMAB
     Indication: COVID-19
     Dosage: UNK
     Route: 042
     Dates: start: 20220131
  2. CEFDINIR [Suspect]
     Active Substance: CEFDINIR
     Indication: Oropharyngeal pain
     Dosage: UNK
     Route: 048
     Dates: start: 20220131
  3. CEFDINIR [Suspect]
     Active Substance: CEFDINIR
     Indication: Nasal congestion

REACTIONS (2)
  - Rash macular [Not Recovered/Not Resolved]
  - Pruritus [Not Recovered/Not Resolved]
